FAERS Safety Report 7688980-2 (Version None)
Quarter: 2011Q3

REPORT INFORMATION
  Report Type: 
  Country: None (occurrence: None)
  Receive Date: 20110817
  Receipt Date: 20110808
  Transmission Date: 20111222
  Serious: Yes (Disabling)
  Sender: FDA-Public Use
  Company Number: DE-JNJFOC-20110709163

PATIENT
  Age: 41 Year
  Sex: Male

DRUGS (4)
  1. LEVOFLOXACIN [Suspect]
     Indication: URINARY TRACT INFECTION
     Dosage: FOR 11 DAYS
     Route: 048
     Dates: start: 20100816, end: 20100826
  2. ZIPRASIDONE HYDROCHLORIDE [Concomitant]
     Route: 065
  3. IBUPROFEN [Concomitant]
     Route: 065
  4. LEVOFLOXACIN [Suspect]
     Indication: EPIDIDYMITIS
     Dosage: FOR 11 DAYS
     Route: 048
     Dates: start: 20100816, end: 20100826

REACTIONS (3)
  - TENDON DISORDER [None]
  - TENDON PAIN [None]
  - TENDONITIS [None]
